FAERS Safety Report 5966163-1 (Version None)
Quarter: 2008Q4

REPORT INFORMATION
  Report Type: 
  Country: None (occurrence: None)
  Receive Date: 20081125
  Receipt Date: 20081119
  Transmission Date: 20090506
  Serious: Yes (Life-Threatening)
  Sender: FDA-Public Use
  Company Number: DE-BAXTER-2008BH012680

PATIENT
  Age: 57 Year
  Sex: Female
  Weight: 85 kg

DRUGS (7)
  1. ENDOXAN BAXTER [Suspect]
     Indication: HODGKIN'S DISEASE STAGE II
     Route: 065
     Dates: start: 20080714, end: 20080714
  2. ADRIAMYCIN PFS [Suspect]
     Indication: HODGKIN'S DISEASE STAGE II
     Route: 065
     Dates: start: 20080714, end: 20080714
  3. ETOPOSIDE [Suspect]
     Indication: HODGKIN'S DISEASE STAGE II
     Route: 065
     Dates: start: 20080714, end: 20080716
  4. PROCARBACIN [Suspect]
     Indication: HODGKIN'S DISEASE STAGE II
     Route: 065
     Dates: start: 20080714, end: 20080720
  5. PREDNISONE TAB [Suspect]
     Indication: HODGKIN'S DISEASE STAGE II
     Route: 065
     Dates: start: 20080714, end: 20080728
  6. VINCRISTINE SULFATE [Suspect]
     Indication: HODGKIN'S DISEASE STAGE II
     Route: 065
     Dates: start: 20080721, end: 20080721
  7. BLEOMYCIN GENERIC [Suspect]
     Indication: HODGKIN'S DISEASE STAGE II
     Route: 065
     Dates: start: 20080721, end: 20080721

REACTIONS (5)
  - ATRIAL FIBRILLATION [None]
  - COLITIS [None]
  - NEUTROPENIA [None]
  - SEPSIS [None]
  - SOMNOLENCE [None]
